FAERS Safety Report 7675475-5 (Version None)
Quarter: 2011Q3

REPORT INFORMATION
  Report Type: 
  Country: None (occurrence: None)
  Receive Date: 20110810
  Receipt Date: 20110808
  Transmission Date: 20111222
  Serious: Yes (Hospitalization)
  Sender: FDA-Public Use
  Company Number: US-SANOFI-AVENTIS-2011SA050575

PATIENT
  Age: 75 Year
  Sex: Male
  Weight: 91 kg

DRUGS (8)
  1. PLAVIX [Suspect]
     Dosage: LOADING DOSE
     Route: 065
     Dates: start: 20090101
  2. PLAVIX [Suspect]
     Indication: CHEST PAIN
     Route: 048
     Dates: start: 20090101
  3. OMEPRAZOLE [Concomitant]
  4. ZANTAC [Concomitant]
  5. PROTONIX [Concomitant]
  6. PLAVIX [Suspect]
     Indication: PROPHYLAXIS
     Route: 048
     Dates: start: 20090101
  7. PLAVIX [Suspect]
     Dosage: LOADING DOSE
     Route: 065
     Dates: start: 20090101
  8. ALL OTHER THERAPEUTIC PRODUCTS [Concomitant]

REACTIONS (3)
  - MALAISE [None]
  - CORONARY ARTERIAL STENT INSERTION [None]
  - DRUG INTERACTION [None]
